FAERS Safety Report 5291641-0 (Version None)
Quarter: 2007Q2

REPORT INFORMATION
  Report Type: 
  Country: None (occurrence: None)
  Receive Date: 20070410
  Receipt Date: 20070403
  Transmission Date: 20071010
  Serious: Yes (Other)
  Sender: FDA-Public Use
  Company Number: BR-JNJFOC-20070401237

PATIENT
  Age: 42 Year
  Sex: Male
  Weight: 60 kg

DRUGS (2)
  1. HALDOL [Suspect]
     Indication: THINKING ABNORMAL
     Dosage: 3 TABLETS DAILY (DOSE UNKNOWN)
     Route: 048
  2. MEDAPI 150 MG/DUPLIVEIR 300 MG/MERCK SHARP 600 MG [Concomitant]
     Indication: HIV INFECTION
     Dosage: 1 TABLET DAILY
     Route: 048

REACTIONS (2)
  - DYSPHAGIA [None]
  - THROAT TIGHTNESS [None]
